FAERS Safety Report 7601689-6 (Version None)
Quarter: 2011Q2

REPORT INFORMATION
  Report Type: 
  Country: None (occurrence: None)
  Receive Date: 20110630
  Receipt Date: 20110616
  Transmission Date: 20111010
  Serious: Yes (Other)
  Sender: FDA-Public Use
  Company Number: 2011P1006802

PATIENT
  Age: 37 Year
  Sex: Female
  Weight: 45.3597 kg

DRUGS (5)
  1. FENTANYL [Suspect]
     Indication: NEURALGIA
     Dosage: 1 PATCH;Q72H;TDER
     Route: 062
  2. NEURONTIN [Concomitant]
  3. FENTANYL [Suspect]
     Indication: NEURALGIA
     Dosage: 1 PATCH;Q72H;TDER
     Route: 062
  4. HYDROCHLOROTHIAZIDE [Suspect]
     Indication: HYPERTENSION
     Dosage: QD;PO
     Route: 048
     Dates: start: 20110301, end: 20110518
  5. FENTANYL [Suspect]
     Indication: NEURALGIA
     Dosage: 1 PATCH;Q72H;TDER
     Route: 062
     Dates: end: 20110616

REACTIONS (4)
  - PRURITUS GENERALISED [None]
  - NAUSEA [None]
  - VOMITING [None]
  - BLOOD POTASSIUM DECREASED [None]
